FAERS Safety Report 7161337-9 (Version None)
Quarter: 2010Q4

REPORT INFORMATION
  Report Type: 
  Country: None (occurrence: None)
  Receive Date: 20101210
  Receipt Date: 20101210
  Transmission Date: 20110411
  Serious: Yes (Hospitalization)
  Sender: FDA-Public Use
  Company Number: None

PATIENT
  Sex: Male
  Weight: 164.2021 kg

DRUGS (1)
  1. PRADAXA [Suspect]
     Indication: CARDIAC FIBRILLATION
     Dosage: 150MG BID PO
     Route: 048
     Dates: start: 20101206, end: 20101207

REACTIONS (1)
  - INTERNATIONAL NORMALISED RATIO INCREASED [None]
